FAERS Safety Report 9176751 (Version 1)
Quarter: 2013Q1

REPORT INFORMATION
  Report Type: Spontaneous
  Country: US (occurrence: US)
  Receive Date: 20130321
  Receipt Date: 20130321
  Transmission Date: 20140127
  Serious: Yes (Other)
  Sender: FDA-Public Use
  Company Number: US-PFIZER INC-2013089103

PATIENT
  Age: 2 Year
  Sex: Male

DRUGS (1)
  1. VIAGRA [Suspect]
     Dosage: 250 MG, ONCE
     Dates: start: 201303, end: 201303

REACTIONS (3)
  - Accidental exposure to product by child [Unknown]
  - Erection increased [Not Recovered/Not Resolved]
  - Skin discolouration [Unknown]
